FAERS Safety Report 11516088 (Version 1)
Quarter: 2015Q3

REPORT INFORMATION
  Report Type: Spontaneous
  Country: US (occurrence: US)
  Receive Date: 20150917
  Receipt Date: 20150917
  Transmission Date: 20151125
  Serious: No
  Sender: FDA-Public Use
  Company Number: US-TEVA-582533USA

PATIENT
  Age: 86 Year
  Sex: Male
  Weight: 63.56 kg

DRUGS (1)
  1. AMLODIPINE W/VALSARTAN [Suspect]
     Active Substance: AMLODIPINE\VALSARTAN
     Indication: BLOOD PRESSURE MEASUREMENT
     Dosage: 10/320
     Dates: start: 20150501

REACTIONS (2)
  - Dizziness [Unknown]
  - Movement disorder [Unknown]
